FAERS Safety Report 4711514-9 (Version None)
Quarter: 2005Q3

REPORT INFORMATION
  Report Type: 
  Country: None (occurrence: None)
  Receive Date: 20050711
  Receipt Date: 20050711
  Transmission Date: 20060218
  Serious: Yes (Other)
  Sender: FDA-Public Use
  Company Number: None

PATIENT
  Sex: Female
  Weight: 90.7194 kg

DRUGS (4)
  1. FACTIVE [Suspect]
     Indication: SINUSITIS
     Dosage: 320MG   DAILY   ORAL
     Route: 048
     Dates: start: 20050601, end: 20050607
  2. STEROIDS [Concomitant]
  3. LEVALL [Concomitant]
  4. TANNIC-12 [Concomitant]

REACTIONS (3)
  - DIZZINESS [None]
  - HEADACHE [None]
  - MUSCLE SPASMS [None]
